FAERS Safety Report 23491954 (Version 1)
Quarter: 2024Q1

REPORT INFORMATION
  Report Type: Spontaneous
  Country: US (occurrence: US)
  Receive Date: 20240207
  Receipt Date: 20240207
  Transmission Date: 20240409
  Serious: No
  Sender: FDA-Public Use
  Company Number: US-JNJFOC-20240206225

PATIENT
  Age: 6 Year
  Sex: Male

DRUGS (2)
  1. RISPERDAL [Suspect]
     Active Substance: RISPERIDONE
     Indication: Defiant behaviour
     Dosage: 1 TABLET AT NIGHT
     Route: 048
     Dates: start: 20081202
  2. RISPERDAL [Suspect]
     Active Substance: RISPERIDONE
     Dosage: HALF TABLET AT NIGHT
     Route: 048
     Dates: start: 20081231

REACTIONS (1)
  - Sluggishness [Unknown]

NARRATIVE: CASE EVENT DATE: 20081201
